FAERS Safety Report 8121126-5 (Version None)
Quarter: 2011Q4

REPORT INFORMATION
  Report Type: 
  Country: None (occurrence: None)
  Receive Date: 20111227
  Receipt Date: 20111102
  Transmission Date: 20120403
  Serious: No
  Sender: FDA-Public Use
  Company Number: PHEH2011US04321

PATIENT
  Age: 59 Year
  Sex: Female
  Weight: 39.8 kg

DRUGS (5)
  1. TRICYCLC ANTIDEPRESSANTS (NO INGREDIENTS/SUBSTANCES) [Concomitant]
  2. ANTI-CONVULSANTS (ANTICONVULSANTS) [Concomitant]
  3. GILENYA [Suspect]
     Indication: MULTIPLE SCLEROSIS
     Dosage: 0.5 MG, QD, ORAL
     Route: 048
     Dates: start: 20110912
  4. ANTIARRHYTHMICS, CLASS I AND III (NO INGREDIENTS/SUBSTANCES) [Concomitant]
  5. METOPROLOL TARTRATE [Concomitant]

REACTIONS (12)
  - DISTURBANCE IN ATTENTION [None]
  - MYALGIA [None]
  - MUSCULOSKELETAL STIFFNESS [None]
  - DIZZINESS [None]
  - CHEST PAIN [None]
  - DYSPNOEA [None]
  - HEART RATE IRREGULAR [None]
  - BALANCE DISORDER [None]
  - PALPITATIONS [None]
  - FALL [None]
  - FATIGUE [None]
  - VISION BLURRED [None]
